FAERS Safety Report 24706153 (Version 1)
Quarter: 2024Q4

REPORT INFORMATION
  Report Type: Spontaneous
  Country: US (occurrence: None)
  Receive Date: 20241206
  Receipt Date: 20241206
  Transmission Date: 20250115
  Serious: Yes (Life-Threatening, Hospitalization, Disabling, Other)
  Sender: Public
  Company Number: None

PATIENT
  Age: 63 Year
  Sex: Male
  Weight: 90 kg

DRUGS (1)
  1. ABILIFY [Suspect]
     Active Substance: ARIPIPRAZOLE

REACTIONS (9)
  - Sedation [None]
  - Sleep disorder [None]
  - Tremor [None]
  - Memory impairment [None]
  - Weight increased [None]
  - Appetite disorder [None]
  - Blood cholesterol increased [None]
  - Lipids increased [None]
  - Job dissatisfaction [None]

NARRATIVE: CASE EVENT DATE: 20210101
